FAERS Safety Report 23569367 (Version 2)
Quarter: 2024Q3

REPORT INFORMATION
  Report Type: Spontaneous
  Country: CA (occurrence: CA)
  Receive Date: 20240227
  Receipt Date: 20240718
  Transmission Date: 20241017
  Serious: Yes (Other)
  Sender: SANOFI AVENTIS
  Company Number: CA-SA-SAC20240221000646

PATIENT
  Age: 53 Year
  Sex: Female
  Weight: 122.47 kg

DRUGS (1)
  1. ENOXAPARIN SODIUM [Suspect]
     Active Substance: ENOXAPARIN SODIUM
     Indication: Prophylaxis
     Dosage: 120 MG, BID
     Route: 058
     Dates: start: 20230917, end: 20230926

REACTIONS (2)
  - Lipodystrophy acquired [Recovered/Resolved]
  - Influenza like illness [Recovered/Resolved]

NARRATIVE: CASE EVENT DATE: 20230917
